FAERS Safety Report 10762466 (Version 1)
Quarter: 2015Q1

REPORT INFORMATION
  Report Type: Spontaneous
  Country: ES (occurrence: ES)
  Receive Date: 20150204
  Receipt Date: 20150204
  Transmission Date: 20150721
  Serious: Yes (Other)
  Sender: FDA-Public Use
  Company Number: PHHY2015ES010912

PATIENT
  Age: 60 Year
  Sex: Male

DRUGS (2)
  1. TASIGNA [Suspect]
     Active Substance: NILOTINIB
     Dosage: 200 MG/12HR
     Route: 048
     Dates: start: 20090510, end: 20150113
  2. TASIGNA [Suspect]
     Active Substance: NILOTINIB
     Indication: CHRONIC MYELOID LEUKAEMIA
     Dosage: 400 MG/12H
     Route: 065

REACTIONS (6)
  - Peripheral vascular disorder [Unknown]
  - Hyperglycaemia [Unknown]
  - Hypertension [Unknown]
  - Arterial disorder [Not Recovered/Not Resolved]
  - Hypercholesterolaemia [Unknown]
  - Pain in extremity [Unknown]

NARRATIVE: CASE EVENT DATE: 201306
